FAERS Safety Report 5718387-6 (Version None)
Quarter: 2008Q2

REPORT INFORMATION
  Report Type: 
  Country: None (occurrence: None)
  Receive Date: 20080425
  Receipt Date: 20070626
  Transmission Date: 20081010
  Serious: No
  Sender: FDA-Public Use
  Company Number: A0661348A

PATIENT
  Sex: Female

DRUGS (2)
  1. DEXEDRINE [Suspect]
  2. PROVIGIL [Suspect]
     Indication: NARCOLEPSY
     Route: 048
     Dates: start: 19990101, end: 20000101

REACTIONS (4)
  - CRYING [None]
  - DEPRESSION [None]
  - DRUG INTERACTION [None]
  - HEADACHE [None]
